FAERS Safety Report 8802703 (Version 1)
Quarter: 2012Q4

REPORT INFORMATION
  Report Type: 
  Country: DE (occurrence: DE)
  Receive Date: 20120921
  Receipt Date: 20120921
  Transmission Date: 20130627
  Serious: Yes (Life-Threatening)
  Sender: FDA-Public Use
  Company Number: DE-BRISTOL-MYERS SQUIBB COMPANY-16975765

PATIENT
  Age: 76 Year
  Sex: Female
  Weight: 60 kg

DRUGS (11)
  1. METFORMIN HCL [Suspect]
     Indication: TYPE 2 DIABETES MELLITUS
     Route: 048
     Dates: start: 2008
  2. DIGITOXIN [Concomitant]
     Dosage: Strength: 0.07mg
     Route: 048
  3. METOPROLOL SUCCINATE [Concomitant]
     Dosage: Strength:47.5mg
     Route: 048
  4. RANITIDINE [Concomitant]
     Dosage: Strength:150mg
     Route: 048
  5. CALCIUM [Concomitant]
     Route: 048
  6. AMYLASE [Concomitant]
     Dosage: Strength:2000 uns
     Route: 048
  7. VITAMIN B1 [Concomitant]
     Dosage: Strength:100mg
     Route: 048
  8. CLOPIDOGREL BISULFATE [Concomitant]
     Dosage: Strength:75mg
     Route: 048
  9. AMIODARONE [Concomitant]
     Dosage: Strength:200mg
     Route: 048
  10. TORASEMIDE [Concomitant]
     Dosage: Strength:10mg
     Route: 048
  11. PHENPROCOUMON [Concomitant]
     Dosage: 1 df = 2.5 uns

REACTIONS (2)
  - Lactic acidosis [Recovered/Resolved]
  - Renal failure acute [Unknown]
